FAERS Safety Report 8939776 (Version 3)
Quarter: 2013Q1

REPORT INFORMATION
  Report Type: Spontaneous
  Country: BR (occurrence: BR)
  Receive Date: 20121203
  Receipt Date: 20130125
  Transmission Date: 20140127
  Serious: Yes (Other)
  Sender: FDA-Public Use
  Company Number: BR-BIOGENIDEC-2012BI022541

PATIENT
  Age: 35 Year
  Sex: Female
  Weight: 70 kg

DRUGS (3)
  1. AVONEX [Suspect]
     Indication: PRODUCT USED FOR UNKNOWN INDICATION
     Route: 030
     Dates: start: 20111001, end: 201201
  2. VITAMINS [Concomitant]
     Indication: PREGNANCY
  3. IMMUNOGLOBULIN [Concomitant]
     Dates: start: 20121224

REACTIONS (1)
  - Caesarean section [Recovered/Resolved]
